FAERS Safety Report 11788633 (Version 1)
Quarter: 2015Q4

REPORT INFORMATION
  Report Type: Spontaneous
  Country: US (occurrence: None)
  Receive Date: 20151130
  Receipt Date: 20151130
  Transmission Date: 20160305
  Serious: Yes (Other)
  Sender: FDA-Public Use
  Company Number: None

PATIENT
  Age: 31 Year
  Sex: Female
  Weight: 53.52 kg

DRUGS (4)
  1. MULTIVITAMIN [Concomitant]
     Active Substance: VITAMINS
  2. ZOLOFT [Concomitant]
     Active Substance: SERTRALINE HYDROCHLORIDE
  3. ORAJEL INSTANT PAIN RELIEF SEVERE PM [Suspect]
     Active Substance: BENZALKONIUM CHLORIDE\BENZOCAINE\MENTHOL
     Indication: TOOTHACHE
     Dates: start: 20151119, end: 20151120
  4. PROBIOTIC [Concomitant]
     Active Substance: PROBIOTICS NOS

REACTIONS (4)
  - Application site hypoaesthesia [None]
  - Swelling face [None]
  - Discomfort [None]
  - Application site swelling [None]

NARRATIVE: CASE EVENT DATE: 20151119
